FAERS Safety Report 8621425-4 (Version None)
Quarter: 2012Q3

REPORT INFORMATION
  Report Type: 
  Country: None (occurrence: None)
  Receive Date: 20120824
  Receipt Date: 20120806
  Transmission Date: 20120928
  Serious: Yes (Hospitalization)
  Sender: FDA-Public Use
  Company Number: JP-PFIZER INC-2011149529

PATIENT
  Age: 65 Year
  Sex: Female
  Weight: 50.25 kg

DRUGS (24)
  1. PREDNISOLONE [Suspect]
     Indication: ADULT T-CELL LYMPHOMA/LEUKAEMIA
     Dosage: 40 MG/M2 X 1/4 WEEK
     Route: 048
     Dates: start: 20110309
  2. PREDNISOLONE [Suspect]
     Dosage: 1MG/KG X 1/2 WEEK
     Route: 041
     Dates: start: 20111213, end: 20111214
  3. MUCOSOLVAN [Concomitant]
     Dosage: 15 MG, 3X/DAY
     Route: 048
     Dates: start: 20111130, end: 20111219
  4. ADRIAMYCIN PFS [Suspect]
     Dosage: 30 MG/M2 X 1/4 WEEK
     Route: 041
     Dates: start: 20110316
  5. PREDNISOLONE [Suspect]
     Dosage: 40 MG/M2 X 1/4 WEEK
     Route: 048
     Dates: start: 20110316
  6. PREDNISOLONE [Suspect]
     Dosage: 2 MG/M2, 1X/DAY
     Route: 048
     Dates: start: 20110324
  7. VINDESINE SULFATE [Suspect]
     Indication: ADULT T-CELL LYMPHOMA/LEUKAEMIA
     Dosage: 2.4 MG/M2 X 1/4 WEEK
     Route: 041
     Dates: start: 20110324
  8. CARBOPLATIN [Suspect]
     Indication: ADULT T-CELL LYMPHOMA/LEUKAEMIA
     Dosage: 250 MG/M2 X 1/4 WEEK
     Route: 041
     Dates: start: 20110324
  9. LANSOPRAZOLE [Concomitant]
     Dosage: 15 MG, 1X/DAY
     Route: 048
     Dates: end: 20111213
  10. SULFAMETHOXAZOLE AND TRIMETHOPRIM [Concomitant]
     Dosage: UNK
     Route: 048
  11. ARMODAFINIL [Concomitant]
     Dosage: 100 MG, 1X/DAY
     Route: 048
     Dates: end: 20110627
  12. ZOLPIDEM [Concomitant]
     Dosage: UNK
     Route: 048
  13. OLOPATADINE HCL [Concomitant]
     Dosage: 5 MG, 2X/DAY
     Route: 048
     Dates: start: 20110728
  14. CEFAZOLIN SODIUM [Concomitant]
     Dosage: 1 DF, 3X/DAY
     Route: 048
     Dates: start: 20111017
  15. CIPROFLOXACIN HCL [Concomitant]
     Dosage: 200 MG, 3X/DAY
     Route: 048
     Dates: start: 20110622, end: 20110627
  16. CYCLOPHOSPHAMIDE [Suspect]
     Indication: ADULT T-CELL LYMPHOMA/LEUKAEMIA
     Dosage: 350 MG/M2 X 1/4 WEEK
     Route: 041
     Dates: start: 20110309
  17. ETOPOSIDE [Suspect]
     Indication: ADULT T-CELL LYMPHOMA/LEUKAEMIA
     Dosage: 100 MG/M2 X 1/4 WEEK
     Route: 041
     Dates: start: 20110324
  18. ARMODAFINIL [Concomitant]
     Dosage: 100 MG, 1X/DAY
     Route: 048
     Dates: start: 20110829, end: 20111214
  19. VINCRISTINE SULFATE [Suspect]
     Indication: ADULT T-CELL LYMPHOMA/LEUKAEMIA
     Dosage: 1 MG/M2 X 1/4 WEEK
     Route: 041
     Dates: start: 20110309
  20. RANIMUSTINE [Suspect]
     Indication: ADULT T-CELL LYMPHOMA/LEUKAEMIA
     Dosage: 60 MG/M2 X 1/4 WEEK
     Route: 041
     Dates: start: 20110316
  21. ZOVIRAX [Concomitant]
     Dosage: 200 MG, 1X/DAY
     Route: 048
     Dates: start: 20110629, end: 20111214
  22. MAGMITT [Concomitant]
     Dosage: 330 MG, 2X/DAY
     Route: 048
     Dates: start: 20110906
  23. ALENDRONATE SODIUM [Concomitant]
     Dosage: 35 MG, WEEKLY
     Route: 048
     Dates: start: 20111028
  24. ADRIAMYCIN PFS [Suspect]
     Indication: ADULT T-CELL LYMPHOMA/LEUKAEMIA
     Dosage: 40 MG/M2 X 1/4 WEEK
     Route: 041
     Dates: start: 20110309

REACTIONS (25)
  - BLOOD SODIUM DECREASED [None]
  - BLOOD PHOSPHORUS DECREASED [None]
  - WEIGHT DECREASED [None]
  - RASH [None]
  - OEDEMA [None]
  - DIARRHOEA [None]
  - BLOOD BILIRUBIN INCREASED [None]
  - ASPARTATE AMINOTRANSFERASE INCREASED [None]
  - HEADACHE [None]
  - ALOPECIA [None]
  - NEUTROPENIA [None]
  - BLOOD POTASSIUM DECREASED [None]
  - INTERSTITIAL LUNG DISEASE [None]
  - LYMPHOPENIA [None]
  - PYREXIA [None]
  - FEBRILE NEUTROPENIA [None]
  - PNEUMONIA [None]
  - ANAEMIA [None]
  - LEUKOPENIA [None]
  - ALANINE AMINOTRANSFERASE INCREASED [None]
  - DECREASED APPETITE [None]
  - CYTOMEGALOVIRUS VIRAEMIA [None]
  - THROMBOCYTOPENIA [None]
  - STOMATITIS [None]
  - VOMITING [None]
